FAERS Safety Report 11303237 (Version 2)
Quarter: 2015Q3

REPORT INFORMATION
  Report Type: Spontaneous
  Country: AU (occurrence: AU)
  Receive Date: 20150723
  Receipt Date: 20150901
  Transmission Date: 20151125
  Serious: Yes (Hospitalization)
  Sender: FDA-Public Use
  Company Number: AU-AUROBINDO-AUR-APL-2015-06233

PATIENT
  Age: 44 Year
  Sex: Male

DRUGS (2)
  1. GLICLAZIDE [Suspect]
     Active Substance: GLICLAZIDE
     Indication: PRODUCT USED FOR UNKNOWN INDICATION
     Route: 065
  2. METFORMIN [Suspect]
     Active Substance: METFORMIN HYDROCHLORIDE
     Indication: PRODUCT USED FOR UNKNOWN INDICATION
     Route: 065

REACTIONS (4)
  - Metabolic acidosis [Recovered/Resolved]
  - Distributive shock [Recovered/Resolved]
  - Vasoplegia syndrome [Recovered/Resolved]
  - Intentional overdose [Recovered/Resolved]
